FAERS Safety Report 12642752 (Version 3)
Quarter: 2017Q1

REPORT INFORMATION
  Report Type: Spontaneous
  Country: US (occurrence: US)
  Receive Date: 20160811
  Receipt Date: 20170112
  Transmission Date: 20170428
  Serious: Yes (Hospitalization)
  Sender: FDA-Public Use
  Company Number: US-AMGEN-USASP2016101360

PATIENT
  Age: 66 Year
  Sex: Male
  Weight: 111 kg

DRUGS (6)
  1. PREDNISONE. [Suspect]
     Active Substance: PREDNISONE
     Indication: HORMONE-REFRACTORY PROSTATE CANCER
     Dosage: 5 MG, BID
     Route: 048
     Dates: start: 20160311
  2. XGEVA [Suspect]
     Active Substance: DENOSUMAB
     Indication: METASTASES TO BONE
     Dosage: 120 MG, QMO
     Route: 058
  3. CALCIUM [Concomitant]
     Active Substance: CALCIUM
  4. ENZALUTAMIDE [Suspect]
     Active Substance: ENZALUTAMIDE
     Indication: HORMONE-REFRACTORY PROSTATE CANCER
     Dosage: 160 MG, QD
     Route: 048
     Dates: start: 20160311
  5. ABIRATERONE [Suspect]
     Active Substance: ABIRATERONE
     Indication: HORMONE-REFRACTORY PROSTATE CANCER
     Dosage: 1000 MG, QD
     Route: 048
     Dates: start: 20160311
  6. VITAMIN D [Concomitant]
     Active Substance: CHOLECALCIFEROL

REACTIONS (10)
  - Constipation [Recovered/Resolved]
  - Back pain [Recovered/Resolved]
  - Abdominal pain [Unknown]
  - Paraesthesia [Unknown]
  - Malaise [Unknown]
  - Dehydration [Recovered/Resolved]
  - Hypocalcaemia [Recovered/Resolved]
  - Hypophagia [Unknown]
  - Respiratory disorder [Unknown]
  - Nausea [Recovered/Resolved]

NARRATIVE: CASE EVENT DATE: 201606
